FAERS Safety Report 4732542-3 (Version None)
Quarter: 2005Q3

REPORT INFORMATION
  Report Type: 
  Country: None (occurrence: None)
  Receive Date: 20050803
  Receipt Date: 20050726
  Transmission Date: 20060218
  Serious: Yes (Disabling, Other)
  Sender: FDA-Public Use
  Company Number: GB-GLAXOSMITHKLINE-B0388902A

PATIENT
  Age: 71 Year
  Sex: Male
  Weight: 93 kg

DRUGS (10)
  1. AVANDIA [Suspect]
     Indication: DIABETES MELLITUS
     Dosage: 4MG PER DAY
     Route: 048
     Dates: start: 20050511, end: 20050519
  2. ASPIRIN [Concomitant]
     Dosage: 300MG PER DAY
     Route: 065
     Dates: start: 20021017
  3. ATENOLOL [Concomitant]
     Indication: PAIN
     Dosage: 50MG PER DAY
     Route: 065
     Dates: start: 20010628
  4. ATORVASTATIN CALCIUM [Concomitant]
     Dosage: 40MG PER DAY
     Route: 065
     Dates: start: 20010731
  5. EPILIM [Concomitant]
     Dosage: 600MG PER DAY
     Route: 065
     Dates: start: 19930831
  6. GLICLAZIDE [Concomitant]
     Dosage: 320MG PER DAY
     Route: 065
     Dates: start: 20050207
  7. LOSARTAN [Concomitant]
     Route: 065
  8. NICORANDIL [Concomitant]
     Route: 065
  9. ISOTARD [Concomitant]
     Indication: PAIN
     Dosage: 90MG PER DAY
     Route: 065
  10. NICORANDIL [Concomitant]
     Indication: PAIN
     Dosage: 20MG PER DAY
     Route: 065
     Dates: start: 20021017

REACTIONS (3)
  - DIZZINESS [None]
  - DYSPNOEA [None]
  - OEDEMA [None]
